FAERS Safety Report 18972539 (Version 7)
Quarter: 2021Q4

REPORT INFORMATION
  Report Type: Other
  Country: US (occurrence: None)
  Receive Date: 20210305
  Receipt Date: 20211203
  Transmission Date: 20220304
  Serious: Yes (Hospitalization, Other)
  Sender: FDA-Public Use
  Company Number: US-ROCHE-2728521

PATIENT
  Age: 56 Year
  Sex: Female
  Weight: 98.064 kg

DRUGS (7)
  1. PULMOZYME [Suspect]
     Active Substance: DORNASE ALFA
     Indication: Respiratory tract malformation
     Dosage: (FORM OF ADMIN: 1 MG/ ML INHALATION SOLUTION) INHALE 2.5 MG ONCE DAILY
     Route: 045
     Dates: start: 20201017
  2. PULMOZYME [Suspect]
     Active Substance: DORNASE ALFA
     Indication: Pulmonary embolism
     Dosage: NEBULIZE THE CONTENTS OF 1 VIAL(S) ONCE DAILY?FORMULATION: AMPUL
     Route: 045
     Dates: end: 20210918
  3. PULMOZYME [Suspect]
     Active Substance: DORNASE ALFA
     Route: 065
  4. ALBUTEROL [Concomitant]
     Active Substance: ALBUTEROL
  5. AMLODIPINE [Concomitant]
     Active Substance: AMLODIPINE BESYLATE
  6. BUDESONIDE [Concomitant]
     Active Substance: BUDESONIDE
  7. FLUTICASONE PROPIONATE [Concomitant]
     Active Substance: FLUTICASONE PROPIONATE

REACTIONS (11)
  - Lung disorder [Unknown]
  - Pulmonary haemorrhage [Recovered/Resolved]
  - Off label use [Unknown]
  - Dyspnoea [Not Recovered/Not Resolved]
  - Haemoptysis [Recovered/Resolved]
  - Lung disorder [Not Recovered/Not Resolved]
  - Musculoskeletal chest pain [Not Recovered/Not Resolved]
  - Dry mouth [Recovering/Resolving]
  - Pyrexia [Unknown]
  - Dysphonia [Unknown]
  - Myalgia [Unknown]

NARRATIVE: CASE EVENT DATE: 20210301
